FAERS Safety Report 9549303 (Version 1)
Quarter: 2013Q3

REPORT INFORMATION
  Report Type: Spontaneous
  Country: US (occurrence: None)
  Receive Date: 20130923
  Receipt Date: 20130923
  Transmission Date: 20140515
  Serious: Yes (Hospitalization)
  Sender: FDA-Public Use
  Company Number: None

PATIENT
  Age: 69 Year
  Sex: Female

DRUGS (7)
  1. WARFARIN 7.5 MG JANTOVEN [Suspect]
     Indication: DEEP VEIN THROMBOSIS
     Dosage: 1 TABLET QHS/BEDTIME ORAL ?9 DAYS (5 MG QDX5, THEN 7.5 QD)
     Route: 048
  2. ENOXAPARIN [Suspect]
     Indication: DEEP VEIN THROMBOSIS
     Route: 058
     Dates: start: 20121206, end: 20121211
  3. BACLOFEN [Concomitant]
  4. HYDROCHLOROTHIAZIDE [Concomitant]
  5. DUONEB [Concomitant]
  6. LOSARTAN [Concomitant]
  7. ULTRACET [Concomitant]

REACTIONS (6)
  - Anaemia [None]
  - Haematoma [None]
  - Hyperkalaemia [None]
  - Urinary tract infection [None]
  - Renal failure acute [None]
  - Contusion [None]
